FAERS Safety Report 6139077-4 (Version None)
Quarter: 2009Q1

REPORT INFORMATION
  Report Type: 
  Country: None (occurrence: None)
  Receive Date: 20090324
  Receipt Date: 20090324
  Transmission Date: 20090719
  Serious: Yes (Other)
  Sender: FDA-Public Use
  Company Number: 2009AL001741

PATIENT
  Sex: Female

DRUGS (1)
  1. DIGOXIN [Suspect]
     Dates: start: 20030101, end: 20080425

REACTIONS (3)
  - ECONOMIC PROBLEM [None]
  - INJURY [None]
  - SOCIAL PROBLEM [None]
